FAERS Safety Report 10177445 (Version 3)
Quarter: 2014Q3

REPORT INFORMATION
  Report Type: Spontaneous
  Country: NO (occurrence: NO)
  Receive Date: 20140516
  Receipt Date: 20140820
  Transmission Date: 20150326
  Serious: Yes (Other)
  Sender: FDA-Public Use
  Company Number: PHHY2014NO059329

PATIENT
  Sex: Male

DRUGS (1)
  1. GILENYA [Suspect]
     Active Substance: FINGOLIMOD HYDROCHLORIDE
     Indication: MULTIPLE SCLEROSIS
     Dosage: UNK UKN, UNK
     Route: 048
     Dates: start: 201308

REACTIONS (5)
  - Hypersensitivity [Unknown]
  - Drug ineffective [Unknown]
  - Central nervous system lesion [Unknown]
  - Eye pain [Unknown]
  - Eye pruritus [Unknown]
